FAERS Safety Report 9522275 (Version 1)
Quarter: 2013Q3

REPORT INFORMATION
  Report Type: Spontaneous
  Country: FR (occurrence: FR)
  Receive Date: 20130913
  Receipt Date: 20130913
  Transmission Date: 20140515
  Serious: Yes (Hospitalization)
  Sender: FDA-Public Use
  Company Number: PHHY2013FR101018

PATIENT
  Sex: Female

DRUGS (2)
  1. ACLASTA [Suspect]
     Indication: OSTEOPOROSIS
     Dosage: ONCE PER YEAR
     Route: 042
  2. PROTELOS [Suspect]
     Indication: OSTEOPOROSIS
     Dosage: 2 G, QD
     Route: 048
     Dates: start: 2009, end: 201201

REACTIONS (1)
  - Hypertrophic cardiomyopathy [Not Recovered/Not Resolved]
